FAERS Safety Report 23073672 (Version 5)
Quarter: 2023Q4

REPORT INFORMATION
  Report Type: Spontaneous
  Country: US (occurrence: US)
  Receive Date: 20231017
  Receipt Date: 20231228
  Transmission Date: 20240109
  Serious: No
  Sender: FDA-Public Use
  Company Number: US-PFIZER INC-202300309762

PATIENT
  Age: 7 Year
  Sex: Female
  Weight: 56.3 kg

DRUGS (4)
  1. GENOTROPIN [Suspect]
     Active Substance: SOMATROPIN
     Indication: Prader-Willi syndrome
     Dosage: 2.2 MG, DAILY
  2. GENOTROPIN [Suspect]
     Active Substance: SOMATROPIN
     Dosage: 2.4 MG, 1X/DAY, EVERY NIGHT
     Route: 058
  3. TOPIRAMATE [Concomitant]
     Active Substance: TOPIRAMATE
     Indication: Obesity
     Dosage: 25 MG AT THE EVENING
     Route: 048
  4. METFORMIN [Concomitant]
     Active Substance: METFORMIN HYDROCHLORIDE
     Indication: Glucose tolerance impaired
     Dosage: UNK
     Route: 048

REACTIONS (5)
  - Expired device used [Unknown]
  - Drug dose omission by device [Unknown]
  - Hypersomnia [Unknown]
  - Fatigue [Unknown]
  - Behaviour disorder [Unknown]
